FAERS Safety Report 25900694 (Version 1)
Quarter: 2025Q4

REPORT INFORMATION
  Report Type: Spontaneous
  Country: JP (occurrence: JP)
  Receive Date: 20251009
  Receipt Date: 20251009
  Transmission Date: 20260119
  Serious: Yes (Hospitalization)
  Sender: CHATTEM
  Company Number: JP-OPELLA-2025OHG029578

PATIENT
  Age: 2 Year
  Sex: Female
  Weight: 14.1 kg

DRUGS (1)
  1. XYZAL [Suspect]
     Active Substance: LEVOCETIRIZINE DIHYDROCHLORIDE
     Indication: Pruritus
     Dosage: AFTER BREAKFAST AND DINNER
     Route: 048
     Dates: start: 20210208

REACTIONS (1)
  - Hyperthermia [Unknown]

NARRATIVE: CASE EVENT DATE: 20210208
